FAERS Safety Report 7108580-2 (Version None)
Quarter: 2010Q4

REPORT INFORMATION
  Report Type: 
  Country: None (occurrence: None)
  Receive Date: 20101112
  Receipt Date: 20101104
  Transmission Date: 20110411
  Serious: Yes (Other)
  Sender: FDA-Public Use
  Company Number: 2010SP046078

PATIENT
  Age: 33 Year
  Sex: Male

DRUGS (9)
  1. MIRTAZAPINE [Suspect]
     Indication: DEPRESSION
     Dosage: 15 MG;QD;PO,  30 MG;QD;PO
     Route: 048
     Dates: start: 20100519, end: 20100601
  2. MIRTAZAPINE [Suspect]
     Indication: DEPRESSION
     Dosage: 15 MG;QD;PO,  30 MG;QD;PO
     Route: 048
     Dates: start: 20100602
  3. LANSOPRAZOLE [Concomitant]
  4. AMITRIPTYLINE [Concomitant]
  5. HYDROCHLORIDE [Concomitant]
  6. VALPROATE SODIUM [Concomitant]
  7. DIAZEPAM [Concomitant]
  8. BROTIZOLAM [Concomitant]
  9. ZOLPIDEM TARTRATE [Concomitant]

REACTIONS (11)
  - ALANINE AMINOTRANSFERASE INCREASED [None]
  - ALCOHOL USE [None]
  - ASPARTATE AMINOTRANSFERASE INCREASED [None]
  - BLOOD CHOLESTEROL INCREASED [None]
  - BLOOD CHOLINESTERASE INCREASED [None]
  - BLOOD TRIGLYCERIDES INCREASED [None]
  - CONDITION AGGRAVATED [None]
  - EXERCISE LACK OF [None]
  - HEPATIC FUNCTION ABNORMAL [None]
  - HYPERLIPIDAEMIA [None]
  - THYMOL TURBIDITY TEST INCREASED [None]
